FAERS Safety Report 11468013 (Version 1)
Quarter: 2015Q3

REPORT INFORMATION
  Report Type: Spontaneous
  Country: US (occurrence: US)
  Receive Date: 20150908
  Receipt Date: 20150908
  Transmission Date: 20151125
  Serious: No
  Sender: FDA-Public Use
  Company Number: US-PFIZER INC-2015283979

PATIENT
  Age: 56 Year
  Sex: Female

DRUGS (1)
  1. IBRANCE [Suspect]
     Active Substance: PALBOCICLIB
     Indication: BREAST CANCER FEMALE
     Dosage: 125 MG, CYCLIC 1 CAPSULE BY MOUTH ONCE A DAY, 3 WEEKS ON FOLLOWED BY 1 WEEK OFF
     Route: 048
     Dates: start: 20150804

REACTIONS (6)
  - Paraesthesia [Unknown]
  - Foot deformity [Unknown]
  - Hypoaesthesia [Unknown]
  - Pain in extremity [Unknown]
  - Lacrimation increased [Unknown]
  - Nerve compression [Unknown]
